FAERS Safety Report 4453872-9 (Version None)
Quarter: 2004Q3

REPORT INFORMATION
  Report Type: 
  Country: None (occurrence: None)
  Receive Date: 20040920
  Receipt Date: 20040908
  Transmission Date: 20050211
  Serious: Yes (Hospitalization)
  Sender: FDA-Public Use
  Company Number: US-MERCK-0409USA01117

PATIENT
  Age: 69 Year
  Sex: Female

DRUGS (1)
  1. FOSAMAX [Suspect]
     Indication: OSTEOPOROSIS
     Route: 048
     Dates: start: 20020601, end: 20040701

REACTIONS (4)
  - CHEST PAIN [None]
  - GASTROINTESTINAL HAEMORRHAGE [None]
  - SENSATION OF FOREIGN BODY [None]
  - VOMITING [None]
